FAERS Safety Report 8016652-3 (Version None)
Quarter: 2012Q1

REPORT INFORMATION
  Report Type: 
  Country: None (occurrence: None)
  Receive Date: 20120102
  Receipt Date: 20111221
  Transmission Date: 20120608
  Serious: Yes (Hospitalization)
  Sender: FDA-Public Use
  Company Number: JP-BRISTOL-MYERS SQUIBB COMPANY-16290520

PATIENT
  Age: 64 Year
  Sex: Male

DRUGS (4)
  1. BARACLUDE [Suspect]
     Indication: HEPATITIS B
     Route: 048
     Dates: end: 20111212
  2. VALTREX [Suspect]
     Route: 048
  3. LEVOFLOXACIN [Suspect]
     Route: 048
     Dates: start: 20111209, end: 20111211
  4. LYRICA [Concomitant]
     Route: 048

REACTIONS (1)
  - RENAL IMPAIRMENT [None]
